FAERS Safety Report 24858758 (Version 1)
Quarter: 2025Q1

REPORT INFORMATION
  Report Type: Spontaneous
  Country: US (occurrence: US)
  Receive Date: 20250118
  Receipt Date: 20250118
  Transmission Date: 20250409
  Serious: No
  Sender: AUROBINDO
  Company Number: US-AUROBINDO-AUR-APL-2024-049608

PATIENT
  Sex: Female

DRUGS (1)
  1. LEVONORGESTREL [Suspect]
     Active Substance: LEVONORGESTREL
     Indication: Unintended pregnancy
     Route: 048

REACTIONS (3)
  - Product solubility abnormal [Unknown]
  - Product administration error [Unknown]
  - Wrong technique in product usage process [Unknown]
